FAERS Safety Report 15747304 (Version 1)
Quarter: 2018Q4

REPORT INFORMATION
  Report Type: Spontaneous
  Country: DK (occurrence: DK)
  Receive Date: 20181220
  Receipt Date: 20181220
  Transmission Date: 20190205
  Serious: Yes (Hospitalization)
  Sender: FDA-Public Use
  Company Number: DK-MYLANLABS-2018M1093792

PATIENT
  Age: 24 Year
  Sex: Female

DRUGS (6)
  1. MAGNESIUM SULPHATE                 /01097001/ [Concomitant]
     Active Substance: MAGNESIUM SULFATE
     Indication: PRODUCT USED FOR UNKNOWN INDICATION
     Route: 041
  2. TERBUTALINE [Suspect]
     Active Substance: TERBUTALINE
     Dosage: 5-25 MICROGRAM/MIN
     Route: 041
  3. TERBUTALINE [Suspect]
     Active Substance: TERBUTALINE
     Indication: STATUS ASTHMATICUS
     Dosage: 0.5 MILLIGRAM
     Route: 042
  4. METHYLPREDNISOLONE. [Concomitant]
     Active Substance: METHYLPREDNISOLONE
     Indication: PRODUCT USED FOR UNKNOWN INDICATION
     Route: 065
  5. BENZYLPENICILLIN [Concomitant]
     Active Substance: PENICILLIN G
     Indication: PRODUCT USED FOR UNKNOWN INDICATION
     Route: 065
  6. SALBUTAMOL [Suspect]
     Active Substance: ALBUTEROL
     Indication: STATUS ASTHMATICUS
     Dosage: 10 X 2.5 MG
     Route: 045

REACTIONS (2)
  - Lactic acidosis [Recovered/Resolved]
  - Paradoxical drug reaction [Recovered/Resolved]
